FAERS Safety Report 20263208 (Version 3)
Quarter: 2025Q2

REPORT INFORMATION
  Report Type: Report from Study
  Country: PL (occurrence: PL)
  Receive Date: 20211231
  Receipt Date: 20250529
  Transmission Date: 20250717
  Serious: Yes (Hospitalization, Other)
  Sender: AUROBINDO
  Company Number: PL-Orion Corporation ORION PHARMA-VENL2021-0007

PATIENT
  Age: 68 Year
  Sex: Female

DRUGS (6)
  1. VENLAFAXINE [Suspect]
     Active Substance: VENLAFAXINE HYDROCHLORIDE
     Indication: Bipolar disorder
     Dosage: 150 MILLIGRAM, ONCE A DAY
     Route: 065
     Dates: start: 2002
  2. SERTRALINE [Suspect]
     Active Substance: SERTRALINE HYDROCHLORIDE
     Indication: Depression
     Dosage: 250 MILLIGRAM, ONCE A DAY
     Route: 065
  3. LITHIUM [Suspect]
     Active Substance: LITHIUM
     Indication: Bipolar II disorder
     Dosage: 375 MILLIGRAM, ONCE A DAY
     Route: 065
     Dates: start: 2021
  4. LITHIUM [Suspect]
     Active Substance: LITHIUM
     Indication: Affective disorder
     Dosage: 1500 MILLIGRAM, ONCE A DAY
     Route: 065
     Dates: start: 2002
  5. LITHIUM [Suspect]
     Active Substance: LITHIUM
     Dosage: 1000 MILLIGRAM, ONCE A DAY
     Route: 065
     Dates: start: 202101
  6. MIANSERIN [Concomitant]
     Active Substance: MIANSERIN
     Indication: Product used for unknown indication
     Dosage: 60 MILLIGRAM, ONCE A DAY
     Route: 065

REACTIONS (10)
  - Depression [Unknown]
  - COVID-19 [Recovered/Resolved]
  - Toxicity to various agents [Unknown]
  - Asthenia [Unknown]
  - Vomiting [Unknown]
  - Tremor [Unknown]
  - Stupor [Unknown]
  - Gait disturbance [Unknown]
  - Disease recurrence [Unknown]
  - Pneumonia [Unknown]

NARRATIVE: CASE EVENT DATE: 20210101
